FAERS Safety Report 6639751-7 (Version None)
Quarter: 2010Q1

REPORT INFORMATION
  Report Type: 
  Country: None (occurrence: None)
  Receive Date: 20100318
  Receipt Date: 20100309
  Transmission Date: 20100710
  Serious: Yes (Other)
  Sender: FDA-Public Use
  Company Number: PHHY2010DE14751

PATIENT
  Sex: Female
  Weight: 138 kg

DRUGS (3)
  1. EXFORGE [Suspect]
     Indication: HYPERTENSION
     Dosage: 160/10 MG PER DAY
     Route: 048
     Dates: start: 20090520
  2. CARVEDILOL [Concomitant]
     Dosage: 1 X 25 MG DAILY
  3. TRIAMTEREN COMP [Concomitant]
     Dosage: 1 X 50/25 MG

REACTIONS (1)
  - SARCOIDOSIS [None]
